FAERS Safety Report 17821337 (Version 2)
Quarter: 2020Q3

REPORT INFORMATION
  Report Type: Spontaneous
  Country: US (occurrence: US)
  Receive Date: 20200525
  Receipt Date: 20200703
  Transmission Date: 20201102
  Serious: No
  Sender: FDA-Public Use
  Company Number: US-ASTRAZENECA-2020SE59054

PATIENT
  Sex: Female

DRUGS (1)
  1. SYMBICORT [Suspect]
     Active Substance: BUDESONIDE\FORMOTEROL FUMARATE DIHYDRATE
     Indication: ASTHMA
     Dosage: 160/4.5UG. TWO PUFFS, TWICE A DAY.
     Route: 055
     Dates: start: 20200419

REACTIONS (4)
  - Device issue [Unknown]
  - Confusional state [Unknown]
  - Visual impairment [Unknown]
  - Drug dose omission by device [Unknown]
